FAERS Safety Report 21873768 (Version 2)
Quarter: 2023Q1

REPORT INFORMATION
  Report Type: Report from Study
  Country: US (occurrence: US)
  Receive Date: 20230117
  Receipt Date: 20230314
  Transmission Date: 20230418
  Serious: Yes (Hospitalization, Other)
  Sender: FDA-Public Use
  Company Number: US-ABBVIE-4255711

PATIENT
  Age: 80 Year
  Sex: Male

DRUGS (14)
  1. SKYRIZI [Suspect]
     Active Substance: RISANKIZUMAB-RZAA
     Indication: Psoriasis
     Dosage: WEEK 0, WEEK 4 AND THEN EVERY 12 WEEKS THEREAFTER
     Route: 058
     Dates: start: 20221117
  2. SKYRIZI [Suspect]
     Active Substance: RISANKIZUMAB-RZAA
     Indication: Psoriasis
     Route: 058
     Dates: start: 20221119
  3. SKYRIZI [Suspect]
     Active Substance: RISANKIZUMAB-RZAA
     Route: 058
  4. ASPIRIN EC 81 MG, [Concomitant]
     Indication: Product used for unknown indication
  5. LEVEMIR FLEXIOUCH 100/ML, [Concomitant]
     Indication: Product used for unknown indication
  6. SYNTHROID 50 MCG, [Concomitant]
     Indication: Product used for unknown indication
  7. TESTOSTERONE 20.25/1 [Concomitant]
     Indication: Product used for unknown indication
  8. ZOLPIDEM TARTRATE [Concomitant]
     Active Substance: ZOLPIDEM TARTRATE
     Indication: Product used for unknown indication
  9. ATORVASTATIN CALCIUM 80 MG, [Concomitant]
     Indication: Product used for unknown indication
  10. LISINOPRIL [Concomitant]
     Active Substance: LISINOPRIL
     Indication: Product used for unknown indication
  11. HYDROCODONE-ACETAMINOP 7.5-325 [Concomitant]
     Indication: Product used for unknown indication
  12. TRIAMCINOLONE ACETONID 0.1 % [Concomitant]
     Indication: Product used for unknown indication
  13. METFORMIN HCL 1000 MG, [Concomitant]
     Indication: Product used for unknown indication
  14. FLUTICASONE PROPIONATE 50 MCG, [Concomitant]
     Indication: Product used for unknown indication

REACTIONS (10)
  - Localised infection [Unknown]
  - Surgery [Unknown]
  - Skin mass [Not Recovered/Not Resolved]
  - Discomfort [Not Recovered/Not Resolved]
  - Skin infection [Recovered/Resolved]
  - Wound [Unknown]
  - Pain [Not Recovered/Not Resolved]
  - Ear swelling [Not Recovered/Not Resolved]
  - Acne [Unknown]
  - Furuncle [Unknown]

NARRATIVE: CASE EVENT DATE: 20221229
